FAERS Safety Report 6626851-0 (Version None)
Quarter: 2010Q1

REPORT INFORMATION
  Report Type: 
  Country: None (occurrence: None)
  Receive Date: 20100308
  Receipt Date: 20100225
  Transmission Date: 20100710
  Serious: Yes (Death, Disabling, Other)
  Sender: FDA-Public Use
  Company Number: 2008-01059

PATIENT
  Age: 64 Year
  Sex: Female
  Weight: 41 kg

DRUGS (11)
  1. VELCADE [Suspect]
     Indication: MULTIPLE MYELOMA
     Dosage: 1.7 MG, INTRAVENOUS
     Route: 042
     Dates: start: 20061218, end: 20070401
  2. DEXAMETHASONE SODIUM PHOSPHATE [Concomitant]
  3. PREDNISOLONE [Concomitant]
  4. DECADRON [Concomitant]
  5. ALPRAZOLAM [Concomitant]
  6. LENDORM [Concomitant]
  7. SELBEX (TEPRENONE) [Concomitant]
  8. MAGNESIUM OXIDE (MAGNESIUM OXIDE) [Concomitant]
  9. BIOFERMIN R (STREPTOCOCCUS FAECALIS) [Concomitant]
  10. OXYCONTIN [Concomitant]
  11. PAXIL [Concomitant]

REACTIONS (13)
  - ALANINE AMINOTRANSFERASE INCREASED [None]
  - ANORECTAL DISORDER [None]
  - ASPARTATE AMINOTRANSFERASE INCREASED [None]
  - BLADDER DISORDER [None]
  - DISEASE PROGRESSION [None]
  - LYMPHADENOPATHY [None]
  - MULTIPLE MYELOMA [None]
  - PARALYSIS [None]
  - PARAPLEGIA [None]
  - PLATELET COUNT DECREASED [None]
  - PLEURAL EFFUSION [None]
  - SMALL INTESTINAL HAEMORRHAGE [None]
  - SPLENOMEGALY [None]
